FAERS Safety Report 11990881 (Version 1)
Quarter: 2016Q1

REPORT INFORMATION
  Report Type: Spontaneous
  Country: US (occurrence: US)
  Receive Date: 20160202
  Receipt Date: 20160202
  Transmission Date: 20160526
  Serious: Yes (Other)
  Sender: FDA-Public Use
  Company Number: US-UNITED THERAPEUTICS-UNT-2016-001302

PATIENT
  Age: 56 Year
  Sex: Female
  Weight: 125.17 kg

DRUGS (2)
  1. COUMADIN [Concomitant]
     Active Substance: WARFARIN SODIUM
     Indication: PRODUCT USED FOR UNKNOWN INDICATION
  2. REMODULIN [Suspect]
     Active Substance: TREPROSTINIL
     Indication: PULMONARY ARTERIAL HYPERTENSION
     Dosage: 0.0667 ?G/KG, CONTINUING
     Route: 058
     Dates: start: 20130730

REACTIONS (3)
  - Vision blurred [Unknown]
  - Accidental overdose [Unknown]
  - Nausea [Unknown]

NARRATIVE: CASE EVENT DATE: 201601
